FAERS Safety Report 4627321-1 (Version None)
Quarter: 2005Q1

REPORT INFORMATION
  Report Type: 
  Country: None (occurrence: None)
  Receive Date: 20050331
  Receipt Date: 20050322
  Transmission Date: 20050727
  Serious: Yes (Hospitalization)
  Sender: FDA-Public Use
  Company Number: HQWYE062911MAR05

PATIENT
  Age: 51 Year
  Sex: Male
  Weight: 88.58 kg

DRUGS (9)
  1. MYLOTARG [Suspect]
     Indication: ACUTE MYELOID LEUKAEMIA
     Dosage: 9 MG/M^2 1X PER 1 DAY
     Dates: start: 20050124, end: 20050124
  2. MYLOTARG [Suspect]
     Indication: ACUTE MYELOID LEUKAEMIA
     Dosage: 9 MG/M^2 1X PER 1 DAY
     Dates: start: 20050207, end: 20050207
  3. SPORANOX [Concomitant]
  4. REMERON [Concomitant]
  5. ACYCLOVIR [Concomitant]
  6. MAG-OX (MAGNESIUM OXIDE) [Concomitant]
  7. MULTIVITAMINS, PLAIN (MULTIVITAMINS, PLAIN) [Concomitant]
  8. VICODIN [Concomitant]
  9. POTASSIUM ACETATE [Concomitant]

REACTIONS (3)
  - FEBRILE NEUTROPENIA [None]
  - NEUTROPENIA [None]
  - STAPHYLOCOCCAL BACTERAEMIA [None]
